FAERS Safety Report 7386077-2 (Version None)
Quarter: 2011Q1

REPORT INFORMATION
  Report Type: 
  Country: None (occurrence: None)
  Receive Date: 20110323
  Receipt Date: 20110309
  Transmission Date: 20110831
  Serious: Yes (Other)
  Sender: FDA-Public Use
  Company Number: 011282

PATIENT
  Sex: Female
  Weight: 72.7 kg

DRUGS (7)
  1. VIVELLE [Concomitant]
  2. PROGESSTERON [Concomitant]
  3. ESTRADIOL [Concomitant]
  4. IMURAN [Concomitant]
  5. CIMZIA [Suspect]
     Indication: CROHN'S DISEASE
     Dosage: SEE IMAGE
     Route: 058
     Dates: start: 20090514
  6. SULFASALAZINE [Concomitant]
  7. FLAXSEED OIL [Concomitant]

REACTIONS (9)
  - IN VITRO FERTILISATION [None]
  - DRUG EXPOSURE DURING PREGNANCY [None]
  - NAUSEA [None]
  - CAESAREAN SECTION [None]
  - PREGNANCY [None]
  - VOMITING [None]
  - PRE-ECLAMPSIA [None]
  - PREMATURE BABY [None]
  - TWIN PREGNANCY [None]
